FAERS Safety Report 8616272 (Version 2)
Quarter: 2014Q3

REPORT INFORMATION
  Report Type: Spontaneous
  Country: US (occurrence: US)
  Receive Date: 20120614
  Receipt Date: 20140814
  Transmission Date: 20150326
  Serious: Yes (Other)
  Sender: FDA-Public Use
  Company Number: US-CELGENEUS-163-21660-12061174

PATIENT

DRUGS (12)
  1. CISPLATIN. [Suspect]
     Active Substance: CISPLATIN
     Indication: METASTATIC MALIGNANT MELANOMA
     Route: 041
  2. TEMOZOLOMIDE [Suspect]
     Active Substance: TEMOZOLOMIDE
     Indication: OFF LABEL USE
  3. INTERLEUKIN 2 [Suspect]
     Active Substance: ALDESLEUKIN
     Indication: METASTATIC MALIGNANT MELANOMA
     Dosage: 5X10(6) IU/M2
     Route: 041
  4. DOPAMINE [Concomitant]
     Active Substance: DOPAMINE\DOPAMINE HYDROCHLORIDE
     Indication: HYPOTENSION
     Route: 065
  5. ABRAXANE [Suspect]
     Active Substance: PACLITAXEL
     Indication: METASTATIC MALIGNANT MELANOMA
     Route: 041
  6. CISPLATIN. [Suspect]
     Active Substance: CISPLATIN
     Indication: OFF LABEL USE
  7. TEMOZOLOMIDE [Suspect]
     Active Substance: TEMOZOLOMIDE
     Indication: METASTATIC MALIGNANT MELANOMA
     Route: 048
  8. INTERFERON A [Suspect]
     Active Substance: INTERFERON ALFA-2A
     Indication: OFF LABEL USE
  9. INTERLEUKIN 2 [Suspect]
     Active Substance: ALDESLEUKIN
     Indication: OFF LABEL USE
  10. I.V. FLUIDS [Concomitant]
     Indication: HYPOTENSION
     Route: 065
  11. INTERFERON A [Suspect]
     Active Substance: INTERFERON ALFA-2A
     Indication: METASTATIC MALIGNANT MELANOMA
     Dosage: 5X10(6) IU/M2
     Route: 058
  12. ABRAXANE [Suspect]
     Active Substance: PACLITAXEL
     Indication: OFF LABEL USE
     Route: 041

REACTIONS (42)
  - Neutropenia [Unknown]
  - Headache [Unknown]
  - Pruritus [Unknown]
  - Alopecia [Unknown]
  - Bone marrow toxicity [None]
  - Gastrointestinal toxicity [None]
  - Tinnitus [Unknown]
  - Anxiety [Unknown]
  - Constipation [Unknown]
  - Toxicity to various agents [None]
  - Alanine aminotransferase increased [Unknown]
  - Metastases to central nervous system [None]
  - Neurotoxicity [None]
  - Decreased appetite [None]
  - Drug ineffective [None]
  - Lymphopenia [Unknown]
  - Fatigue [Unknown]
  - Metastatic malignant melanoma [Unknown]
  - Deafness [Unknown]
  - Hyponatraemia [Unknown]
  - Hypomagnesaemia [Unknown]
  - Hypotension [Unknown]
  - Vomiting [Unknown]
  - Leukopenia [Unknown]
  - Anaemia [Unknown]
  - Thrombocytopenia [Unknown]
  - Diarrhoea [Unknown]
  - Rash [Unknown]
  - Nausea [Unknown]
  - Dysgeusia [Unknown]
  - Pyrexia [None]
  - Hepatotoxicity [None]
  - Infection [Unknown]
  - Neuropathy peripheral [Unknown]
  - Transaminases [Unknown]
  - Hepatic function abnormal [None]
  - Renal impairment [None]
  - Haematotoxicity [None]
  - Chills [Unknown]
  - Malignant neoplasm progression [None]
  - Influenza like illness [None]
  - Malaise [None]
